FAERS Safety Report 18335452 (Version 2)
Quarter: 2021Q3

REPORT INFORMATION
  Report Type: Report from Study
  Country: None (occurrence: US)
  Receive Date: 20201001
  Receipt Date: 20210702
  Transmission Date: 20211014
  Serious: Yes (Hospitalization, Other)
  Sender: FDA-Public Use
  Company Number: US-ABBVIE-20K-163-3587656-00

PATIENT
  Age: 65 Year
  Sex: Female
  Weight: 49.49 kg

DRUGS (1)
  1. HUMIRA [Suspect]
     Active Substance: ADALIMUMAB
     Indication: RHEUMATOID ARTHRITIS
     Dosage: CITRATE FREE
     Route: 058
     Dates: start: 2014

REACTIONS (10)
  - Renal failure [Not Recovered/Not Resolved]
  - Heart rate decreased [Recovered/Resolved]
  - Arthralgia [Unknown]
  - Costochondritis [Not Recovered/Not Resolved]
  - Intervertebral disc protrusion [Recovered/Resolved]
  - Osteoarthritis [Recovered/Resolved]
  - Heart rate decreased [Recovered/Resolved]
  - Osteoarthritis [Recovered/Resolved]
  - Intervertebral disc disorder [Recovered/Resolved]
  - Chest pain [Not Recovered/Not Resolved]

NARRATIVE: CASE EVENT DATE: 20140625
